FAERS Safety Report 23907987 (Version 1)
Quarter: 2024Q2

REPORT INFORMATION
  Report Type: Spontaneous
  Country: US (occurrence: None)
  Receive Date: 20240524
  Receipt Date: 20240524
  Transmission Date: 20240716
  Serious: Yes (Hospitalization)
  Sender: FDA-Public Use
  Company Number: None

PATIENT
  Age: 64 Year
  Sex: Female

DRUGS (1)
  1. IBRANCE [Suspect]
     Active Substance: PALBOCICLIB
     Indication: Breast cancer
     Dosage: FREQUENCY : AS DIRECTED;?
     Route: 048

REACTIONS (3)
  - Pain in jaw [None]
  - Tooth extraction [None]
  - Impaired healing [None]

NARRATIVE: CASE EVENT DATE: 20240505
